FAERS Safety Report 9405703 (Version 1)
Quarter: 2013Q3

REPORT INFORMATION
  Report Type: Spontaneous
  Country: US (occurrence: US)
  Receive Date: 20130717
  Receipt Date: 20130717
  Transmission Date: 20140515
  Serious: Yes (Death)
  Sender: FDA-Public Use
  Company Number: US-SPECTRUM PHARMACEUTICALS, INC.-13-F-US-00210

PATIENT
  Age: 41 Year
  Sex: Male
  Weight: 86.17 kg

DRUGS (1)
  1. FOLOTYN [Suspect]
     Indication: PERIPHERAL T-CELL LYMPHOMA UNSPECIFIED
     Dosage: 31 MG, 1XW
     Route: 042
     Dates: start: 20130605, end: 20130612

REACTIONS (1)
  - Disease progression [Fatal]
